FAERS Safety Report 4647007-7 (Version None)
Quarter: 2005Q2

REPORT INFORMATION
  Report Type: 
  Country: None (occurrence: None)
  Receive Date: 20050331
  Receipt Date: 20050207
  Transmission Date: 20051028
  Serious: No
  Sender: FDA-Public Use
  Company Number: 05P-163-0289956

PATIENT
  Age: 73 Year
  Sex: Female
  Weight: 57.1532 kg

DRUGS (15)
  1. HUMIRA [Suspect]
     Indication: RHEUMATOID ARTHRITIS
     Dosage: 40 MG, 1 IN 2 WK, SUBCUTANEOUS
     Route: 058
     Dates: start: 20030501
  2. ATORVASTATIN CALCIUM [Concomitant]
  3. FOLTEX [Concomitant]
  4. GLIMEPIRIDE [Concomitant]
  5. ALENDRONATE SODIUM [Concomitant]
  6. CALCITONIN-SALMON [Concomitant]
  7. TYLENOL PM [Concomitant]
  8. MULTI-VITAMINS [Concomitant]
  9. PREDNISONE [Concomitant]
  10. PROPACET 100 [Concomitant]
  11. LORTAB [Concomitant]
  12. VERAPAMIL [Concomitant]
  13. DIGOXIN [Concomitant]
  14. COUMADIN [Concomitant]
  15. DIOVAN [Concomitant]

REACTIONS (6)
  - BLOOD GLUCOSE INCREASED [None]
  - CONDITION AGGRAVATED [None]
  - INTERNATIONAL NORMALISED RATIO FLUCTUATION [None]
  - PALPITATIONS [None]
  - RHEUMATOID ARTHRITIS [None]
  - STOMATITIS [None]
